FAERS Safety Report 8509978-8 (Version None)
Quarter: 2012Q3

REPORT INFORMATION
  Report Type: 
  Country: None (occurrence: None)
  Receive Date: 20120713
  Receipt Date: 20120703
  Transmission Date: 20120928
  Serious: No
  Sender: FDA-Public Use
  Company Number: US-ASTRAZENECA-2007UW13972

PATIENT
  Age: 50 Year
  Sex: Male
  Weight: 127 kg

DRUGS (4)
  1. NEXIUM [Suspect]
     Route: 048
  2. NEXIUM [Suspect]
     Indication: GASTROOESOPHAGEAL REFLUX DISEASE
     Route: 048
  3. OMEPRAZOLE [Suspect]
     Route: 048
  4. THYROID TAB [Concomitant]

REACTIONS (8)
  - NAUSEA [None]
  - ERUCTATION [None]
  - ABDOMINAL DISCOMFORT [None]
  - HYPERHIDROSIS [None]
  - GASTROINTESTINAL SOUNDS ABNORMAL [None]
  - BACK PAIN [None]
  - PRURITUS [None]
  - ERYTHEMA [None]
